FAERS Safety Report 6714287-3 (Version None)
Quarter: 2010Q2

REPORT INFORMATION
  Report Type: 
  Country: None (occurrence: None)
  Receive Date: 20100506
  Receipt Date: 20100308
  Transmission Date: 20101027
  Serious: No
  Sender: FDA-Public Use
  Company Number: US-BAUSCH-2010BL001340

PATIENT
  Age: 35 Year
  Sex: Female

DRUGS (3)
  1. LOTEMAX [Suspect]
     Indication: DRY EYE
     Route: 047
     Dates: start: 20100203, end: 20100213
  2. LOTEMAX [Suspect]
     Indication: OFF LABEL USE
     Route: 047
     Dates: start: 20100203, end: 20100213
  3. RESTASIS [Concomitant]
     Indication: DRY EYE

REACTIONS (7)
  - EYE IRRITATION [None]
  - EYE PAIN [None]
  - EYE SWELLING [None]
  - FEELING JITTERY [None]
  - NASAL DISCOMFORT [None]
  - OCULAR DISCOMFORT [None]
  - RHINALGIA [None]
